FAERS Safety Report 9492559 (Version 2)
Quarter: 2014Q1

REPORT INFORMATION
  Report Type: Spontaneous
  Country: FR (occurrence: FR)
  Receive Date: 20130830
  Receipt Date: 20140319
  Transmission Date: 20141002
  Serious: Yes (Hospitalization, Other)
  Sender: FDA-Public Use
  Company Number: FR-VERTEX PHARMACEUTICALS INC-2013-009173

PATIENT
  Age: 53 Year
  Sex: Female

DRUGS (24)
  1. INCIVO [Suspect]
     Indication: HEPATITIS C
     Dosage: DISCONTINUED AT WEEK 12
     Route: 065
  2. INTERFERON ALFA 2B [Suspect]
     Indication: HEPATITIS C
     Dosage: 1.5 ?G/KG, QW
     Route: 065
  3. INTERFERON ALFA 2B [Suspect]
     Dosage: 45 ?G/KG, QW
     Route: 065
  4. RIBAVIRIN [Suspect]
     Indication: HEPATITIS C
     Dosage: 600 MG, QD
     Route: 065
  5. RIBAVIRIN [Suspect]
     Dosage: 400 MG, QD
     Route: 065
  6. RIBAVIRIN [Suspect]
     Dosage: 400 UNK, UNK
  7. RIBAVIRIN [Suspect]
     Dosage: 600 MG, UNK
     Route: 065
  8. TACROLIMUS [Interacting]
     Indication: LIVER TRANSPLANT
     Dosage: 2.5 MG, BID
     Route: 065
  9. TACROLIMUS [Interacting]
     Dosage: 0.5 MG, UNK
     Route: 065
  10. CYCLOSPORINE [Suspect]
     Indication: LIVER TRANSPLANT
  11. CORTICOSTEROID NOS [Suspect]
     Indication: LIVER TRANSPLANT
  12. MYCOPHENOLATE MOFETIL [Suspect]
     Indication: LIVER TRANSPLANT
  13. ERYTHROPOIETIN [Suspect]
     Indication: ANAEMIA
  14. ABACAVIR [Concomitant]
     Indication: HIV INFECTION
     Dosage: DOSAGE FORM: UNSPECIFIED
     Route: 065
  15. LAMIVUDINE [Concomitant]
     Indication: HIV INFECTION
     Dosage: 300 MG, UNK
     Route: 065
  16. LAMIVUDINE [Concomitant]
     Dosage: OSAGE FORM: UNSPECIFIED
  17. TENOFOVIR [Concomitant]
     Indication: HIV INFECTION
     Dosage: 300 MG, UNK
     Route: 065
  18. TENOFOVIR [Concomitant]
     Dosage: UNK
  19. RALTEGRAVIR [Concomitant]
     Indication: HIV INFECTION
     Dosage: 400 MG, BID
     Route: 065
  20. RALTEGRAVIR [Concomitant]
     Dosage: UNK
  21. RITONAVIR [Concomitant]
     Indication: HIV INFECTION
     Dosage: 100 MG, QD
     Route: 065
  22. RITONAVIR [Concomitant]
     Dosage: UNK
  23. DARUNAVIR [Concomitant]
     Indication: HIV INFECTION
     Dosage: 800 MG, QD
     Route: 065
  24. DARUNAVIR [Concomitant]
     Dosage: UNK

REACTIONS (9)
  - Hepatitis C [Recovered/Resolved]
  - Hepatitis cholestatic [Unknown]
  - Hypertrichosis [Unknown]
  - Gingival hyperplasia [Unknown]
  - Neutropenia [Unknown]
  - Thrombocytopenia [Unknown]
  - Anaemia [Unknown]
  - Off label use [Unknown]
  - Drug interaction [Unknown]
